FAERS Safety Report 4608388-3 (Version None)
Quarter: 2005Q1

REPORT INFORMATION
  Report Type: 
  Country: None (occurrence: None)
  Receive Date: 20050315
  Receipt Date: 20050303
  Transmission Date: 20050727
  Serious: Yes (Hospitalization)
  Sender: FDA-Public Use
  Company Number: US-JNJFOC-20050301886

PATIENT

DRUGS (3)
  1. INFLIXIMAB [Suspect]
     Route: 042
  2. ACETAMINOPHEN [Concomitant]
     Indication: PREMEDICATION
     Route: 049
  3. DIPHENHYDRAMINE HCL [Concomitant]
     Indication: PREMEDICATION
     Route: 049

REACTIONS (5)
  - ABDOMINAL PAIN [None]
  - BLADDER DISORDER [None]
  - ESCHERICHIA URINARY TRACT INFECTION [None]
  - SEPSIS [None]
  - URINARY BLADDER HAEMORRHAGE [None]
